FAERS Safety Report 13582500 (Version 1)
Quarter: 2017Q2

REPORT INFORMATION
  Report Type: Spontaneous
  Country: IT (occurrence: IT)
  Receive Date: 20170525
  Receipt Date: 20170525
  Transmission Date: 20170830
  Serious: Yes (Other)
  Sender: FDA-Public Use
  Company Number: IT-ELI_LILLY_AND_COMPANY-IT201705008044

PATIENT
  Age: 57 Year
  Sex: Male

DRUGS (2)
  1. ABRAXANE [Suspect]
     Active Substance: PACLITAXEL
     Indication: PANCREATIC CARCINOMA
     Dosage: 198 MG, CYCLICAL
     Route: 042
     Dates: start: 20160922
  2. GEMZAR [Suspect]
     Active Substance: GEMCITABINE HYDROCHLORIDE
     Indication: PANCREATIC CARCINOMA
     Dosage: 1584 MG, CYCLICAL
     Route: 042
     Dates: start: 20160922

REACTIONS (2)
  - Off label use [Unknown]
  - Gravitational oedema [Recovered/Resolved]

NARRATIVE: CASE EVENT DATE: 20161205
